FAERS Safety Report 10414933 (Version 2)
Quarter: 2014Q3

REPORT INFORMATION
  Report Type: Report from Study
  Country: BR (occurrence: BR)
  Receive Date: 20140828
  Receipt Date: 20140905
  Transmission Date: 20150326
  Serious: Yes (Life-Threatening, Other)
  Sender: FDA-Public Use
  Company Number: PHHY2014BR107225

PATIENT
  Sex: Male
  Weight: 85 kg

DRUGS (2)
  1. AEROLIN [Concomitant]
     Active Substance: ALBUTEROL
     Indication: ASTHMA
     Dosage: UNK UKN, PRN (USED ONLY WHEN HAD EPISODES)
     Route: 055
  2. STARFORM [Suspect]
     Active Substance: METFORMIN\NATEGLINIDE
     Indication: DIABETES MELLITUS
     Dosage: 3 DF, A DAY
     Route: 048

REACTIONS (5)
  - Sensory loss [Recovering/Resolving]
  - Visual impairment [Recovering/Resolving]
  - Inguinal hernia [Recovering/Resolving]
  - Blood glucose increased [Recovering/Resolving]
  - Pain in extremity [Recovering/Resolving]
